FAERS Safety Report 19860295 (Version 1)
Quarter: 2021Q3

REPORT INFORMATION
  Report Type: Spontaneous
  Country: DE (occurrence: DE)
  Receive Date: 20210921
  Receipt Date: 20210921
  Transmission Date: 20211014
  Serious: Yes (Hospitalization, Other)
  Sender: FDA-Public Use
  Company Number: DE-TERSERA THERAPEUTICS LLC-2021TRS004402

PATIENT

DRUGS (6)
  1. TORSEMIDE. [Concomitant]
     Active Substance: TORSEMIDE
     Indication: PRODUCT USED FOR UNKNOWN INDICATION
     Dosage: 10 MG
     Route: 065
  2. XERMELO [Suspect]
     Active Substance: TELOTRISTAT ETHYL
     Dosage: 3 TABLETS PER DAY (3 DOSAGE FORMS,1 D)
     Route: 065
     Dates: start: 20210903, end: 20210911
  3. XERMELO [Suspect]
     Active Substance: TELOTRISTAT ETHYL
     Indication: CARCINOID SYNDROME
     Dosage: 2 TABLETS DAILY (2 DOSAGE FORMS,1 D)
     Route: 065
     Dates: start: 202106, end: 2021
  4. SANDOSTATIN [Concomitant]
     Active Substance: OCTREOTIDE ACETATE
     Indication: PRODUCT USED FOR UNKNOWN INDICATION
     Dosage: INJECTION ONCE A MONTH (1 M) UP TO 4000 MG
     Route: 065
  5. NOVOSULFIN [Concomitant]
     Indication: ANALGESIC THERAPY
     Dosage: (UP TO 4000 MG)
     Route: 065
  6. ALDACTONE [Concomitant]
     Active Substance: SPIRONOLACTONE
     Indication: PRODUCT USED FOR UNKNOWN INDICATION
     Dosage: 25 MG
     Route: 065

REACTIONS (6)
  - Hypoacusis [Unknown]
  - Off label use [Unknown]
  - Weight increased [Unknown]
  - Wheelchair user [Unknown]
  - Epilepsy [Unknown]
  - Fluid retention [Unknown]

NARRATIVE: CASE EVENT DATE: 202106
